FAERS Safety Report 7707537-8 (Version None)
Quarter: 2011Q3

REPORT INFORMATION
  Report Type: 
  Country: None (occurrence: None)
  Receive Date: 20110824
  Receipt Date: 20110816
  Transmission Date: 20111222
  Serious: Yes (Other)
  Sender: FDA-Public Use
  Company Number: CA-ELI_LILLY_AND_COMPANY-CA201108005418

PATIENT
  Age: 50 Year
  Sex: Male

DRUGS (2)
  1. GEMCITABINE HYDROCHLORIDE [Suspect]
     Indication: SMALL INTESTINE CARCINOMA
     Dosage: 1000 MG/M2, WEEKLY (1/W)
  2. GEMCITABINE HYDROCHLORIDE [Suspect]
     Dosage: 40 MG/M2, UNK

REACTIONS (1)
  - MYOSITIS [None]
